FAERS Safety Report 4880350-5 (Version None)
Quarter: 2006Q1

REPORT INFORMATION
  Report Type: 
  Country: None (occurrence: None)
  Receive Date: 20060111
  Receipt Date: 20060111
  Transmission Date: 20060701
  Serious: Yes (Hospitalization)
  Sender: FDA-Public Use
  Company Number: None

PATIENT
  Age: 72 Year
  Sex: Male
  Weight: 95.2554 kg

DRUGS (1)
  1. ZETIA [Suspect]
     Indication: BLOOD CHOLESTEROL INCREASED
     Dosage: 1 DAILY PO
     Route: 048
     Dates: start: 20050301, end: 20051231

REACTIONS (7)
  - BACK PAIN [None]
  - CHEST PAIN [None]
  - COUGH [None]
  - DIZZINESS [None]
  - LOSS OF CONSCIOUSNESS [None]
  - MYALGIA [None]
  - NASOPHARYNGITIS [None]
